FAERS Safety Report 4621328-6 (Version None)
Quarter: 2005Q1

REPORT INFORMATION
  Report Type: 
  Country: None (occurrence: None)
  Receive Date: 20050324
  Receipt Date: 20050324
  Transmission Date: 20050727
  Serious: Yes (Hospitalization, Disabling)
  Sender: FDA-Public Use
  Company Number: None

PATIENT
  Sex: Female
  Weight: 56.6996 kg

DRUGS (2)
  1. PAROXETINE 10-30MG [Suspect]
     Indication: DEPRESSION
     Dosage: 10-30MG ONCE DAILY ORAL
     Route: 048
     Dates: start: 20020501, end: 20050314
  2. PAROXETINE 10-30MG [Suspect]
     Indication: PANIC DISORDER
     Dosage: 10-30MG ONCE DAILY ORAL
     Route: 048
     Dates: start: 20020501, end: 20050314

REACTIONS (13)
  - ABDOMINAL PAIN UPPER [None]
  - ACTIVITIES OF DAILY LIVING IMPAIRED [None]
  - ASTHENIA [None]
  - BEDRIDDEN [None]
  - DECREASED APPETITE [None]
  - DEHYDRATION [None]
  - DRUG WITHDRAWAL SYNDROME [None]
  - ERUCTATION [None]
  - FLATULENCE [None]
  - MALAISE [None]
  - NIGHT SWEATS [None]
  - NIGHTMARE [None]
  - PANIC ATTACK [None]
